FAERS Safety Report 9184950 (Version 1)
Quarter: 2013Q1

REPORT INFORMATION
  Report Type: Spontaneous
  Country: JP (occurrence: JP)
  Receive Date: 20130325
  Receipt Date: 20130325
  Transmission Date: 20140127
  Serious: Yes (Hospitalization)
  Sender: FDA-Public Use
  Company Number: JP-BAXTER-2013BAX010212

PATIENT
  Sex: Male

DRUGS (1)
  1. ADVATE 2000 [Suspect]
     Indication: FACTOR VIII DEFICIENCY
     Route: 042

REACTIONS (2)
  - Condition aggravated [Unknown]
  - Haemophilic arthropathy [Unknown]
